FAERS Safety Report 6308052-9 (Version None)
Quarter: 2009Q3

REPORT INFORMATION
  Report Type: 
  Country: None (occurrence: None)
  Receive Date: 20090813
  Receipt Date: 20090807
  Transmission Date: 20100115
  Serious: No
  Sender: FDA-Public Use
  Company Number: B0572534A

PATIENT
  Age: 29 Year
  Sex: Female

DRUGS (5)
  1. COMBIVIR [Suspect]
     Indication: HIV INFECTION
     Dosage: 900MG PER DAY
     Route: 048
     Dates: start: 20070101
  2. KALETRA [Suspect]
     Indication: HIV INFECTION
     Dosage: 1000MG PER DAY
     Route: 048
     Dates: start: 20070101
  3. TRIMETHOPRIM + SULFAMETHOXAZOLE [Suspect]
     Indication: DRUG USE FOR UNKNOWN INDICATION
     Route: 065
  4. INNOHEP [Suspect]
     Indication: DEEP VEIN THROMBOSIS
     Route: 065
  5. INNOHEP [Concomitant]
     Indication: THROMBOSIS PROPHYLAXIS

REACTIONS (3)
  - DEEP VEIN THROMBOSIS [None]
  - DRUG EXPOSURE DURING PREGNANCY [None]
  - LIVE BIRTH [None]
